FAERS Safety Report 23961984 (Version 1)
Quarter: 2024Q2

REPORT INFORMATION
  Report Type: Spontaneous
  Country: US (occurrence: None)
  Receive Date: 20240610
  Receipt Date: 20240610
  Transmission Date: 20240715
  Serious: No
  Sender: FDA-Public Use
  Company Number: None

PATIENT
  Age: 65 Year
  Sex: Female

DRUGS (2)
  1. VTAMA [Suspect]
     Active Substance: TAPINAROF
     Indication: Psoriasis
     Dosage: OTHER QUANTITY : THIN LAYER ON AREA;?FREQUENCY : DAILY;?
     Dates: start: 202402
  2. VTAMA [Suspect]
     Active Substance: TAPINAROF
     Indication: Paraesthesia

REACTIONS (1)
  - Spinal operation [None]
